FAERS Safety Report 10368829 (Version 1)
Quarter: 2014Q3

REPORT INFORMATION
  Report Type: Other
  Country: GB (occurrence: GB)
  Receive Date: 20140807
  Receipt Date: 20140807
  Transmission Date: 20150326
  Serious: Yes (Hospitalization)
  Sender: FDA-Public Use
  Company Number: GB-MYLAN-2014S1017664

PATIENT

DRUGS (2)
  1. WARFARIN [Suspect]
     Active Substance: WARFARIN
     Indication: PULMONARY ARTERY ATRESIA
     Dosage: UNK
     Route: 048
  2. PENICILLIN [Concomitant]
     Active Substance: PENICILLIN
     Dosage: UNK

REACTIONS (1)
  - International normalised ratio increased [Recovered/Resolved]
